FAERS Safety Report 19631122 (Version 1)
Quarter: 2021Q3

REPORT INFORMATION
  Report Type: Report from Study
  Country: US (occurrence: US)
  Receive Date: 20210728
  Receipt Date: 20210728
  Transmission Date: 20211014
  Serious: Yes (Other)
  Sender: FDA-Public Use
  Company Number: US-PFIZER INC-2021897895

PATIENT
  Age: 52 Year
  Sex: Female
  Weight: 104.6 kg

DRUGS (3)
  1. FLOTETUZUMAB. [Suspect]
     Active Substance: FLOTETUZUMAB
     Dosage: 500 NG/KG/DAY (CYCLE C2D10)
     Route: 042
     Dates: start: 20210603
  2. MICAFUNGIN. [Suspect]
     Active Substance: MICAFUNGIN SODIUM
  3. CLINDAMYCIN HCL [Suspect]
     Active Substance: CLINDAMYCIN HYDROCHLORIDE

REACTIONS (2)
  - Face oedema [Recovering/Resolving]
  - Laryngeal oedema [Recovering/Resolving]

NARRATIVE: CASE EVENT DATE: 20210708
